FAERS Safety Report 12983513 (Version 2)
Quarter: 2017Q1

REPORT INFORMATION
  Report Type: Spontaneous
  Country: US (occurrence: US)
  Receive Date: 20161129
  Receipt Date: 20170116
  Transmission Date: 20170428
  Serious: No
  Sender: FDA-Public Use
  Company Number: US-PFIZER INC-2016421551

PATIENT
  Age: 72 Year

DRUGS (1)
  1. MARCAINE [Suspect]
     Active Substance: BUPIVACAINE HYDROCHLORIDE
     Indication: SPINAL ANAESTHESIA
     Dosage: UNK, BUPIVACAINE HCI (7.5 MG/ML) WITH DEXTROSE (82.5 MG/ML)
     Route: 037

REACTIONS (1)
  - Drug ineffective [Unknown]
